FAERS Safety Report 7597004-7 (Version None)
Quarter: 2011Q3

REPORT INFORMATION
  Report Type: 
  Country: None (occurrence: None)
  Receive Date: 20110708
  Receipt Date: 20110704
  Transmission Date: 20111222
  Serious: Yes (Life-Threatening, Other)
  Sender: FDA-Public Use
  Company Number: BE-ABBOTT-11P-013-0723187-00

PATIENT
  Sex: Male
  Weight: 65 kg

DRUGS (5)
  1. ZESTRIL [Concomitant]
     Indication: HYPERTENSION
     Route: 048
  2. SYMBICORT [Concomitant]
     Indication: EMPHYSEMA
  3. LYSOMUCIL [Concomitant]
     Indication: PRODUCT USED FOR UNKNOWN INDICATION
     Route: 048
  4. DUOVENT [Concomitant]
     Indication: EMPHYSEMA
  5. HUMIRA [Suspect]
     Indication: RHEUMATOID ARTHRITIS
     Dates: start: 20050415, end: 20110516

REACTIONS (3)
  - CHRONIC OBSTRUCTIVE PULMONARY DISEASE [None]
  - EMPHYSEMA [None]
  - LUNG NEOPLASM MALIGNANT [None]
